FAERS Safety Report 23050625 (Version 1)
Quarter: 2023Q4

REPORT INFORMATION
  Report Type: Spontaneous
  Country: IN (occurrence: IN)
  Receive Date: 20231010
  Receipt Date: 20231010
  Transmission Date: 20240109
  Serious: Yes (Other)
  Sender: FDA-Public Use
  Company Number: IN-SUN PHARMACEUTICAL INDUSTRIES LTD-2023R1-411987

PATIENT
  Age: 33 Year
  Sex: Female
  Weight: 70 kg

DRUGS (2)
  1. ACETAZOLAMIDE [Suspect]
     Active Substance: ACETAZOLAMIDE
     Indication: Nephrotic syndrome
     Dosage: UNK
     Route: 065
  2. TELMISARTAN [Suspect]
     Active Substance: TELMISARTAN
     Indication: Nephrotic syndrome
     Dosage: UNK
     Route: 065

REACTIONS (1)
  - Disease recurrence [Unknown]
